FAERS Safety Report 11078783 (Version 1)
Quarter: 2015Q2

REPORT INFORMATION
  Report Type: Spontaneous
  Country: US (occurrence: None)
  Receive Date: 20150429
  Receipt Date: 20150429
  Transmission Date: 20150821
  Serious: Yes (Hospitalization)
  Sender: FDA-Public Use
  Company Number: None

PATIENT
  Age: 30 Year
  Sex: Female
  Weight: 94.1 kg

DRUGS (1)
  1. VARENICLINE TARTRATE [Suspect]
     Active Substance: VARENICLINE TARTRATE
     Indication: SMOKING CESSATION THERAPY
     Route: 048
     Dates: start: 20150311, end: 20150410

REACTIONS (5)
  - Gallbladder disorder [None]
  - Ulcer [None]
  - Hernia [None]
  - Cardiac disorder [None]
  - Malaise [None]

NARRATIVE: CASE EVENT DATE: 20150427
